FAERS Safety Report 5932370-7 (Version None)
Quarter: 2008Q4

REPORT INFORMATION
  Report Type: 
  Country: None (occurrence: None)
  Receive Date: 20081009
  Receipt Date: 20080211
  Transmission Date: 20090506
  Serious: Yes (Hospitalization, Other)
  Sender: FDA-Public Use
  Company Number: PHEH2006US08865

PATIENT
  Age: 93 Year
  Sex: Female
  Weight: 57.1 kg

DRUGS (2)
  1. ZOMETA [Suspect]
     Indication: MULTIPLE MYELOMA
     Dates: start: 20031001
  2. PROCRIT [Concomitant]

REACTIONS (14)
  - ACTINOMYCOSIS [None]
  - ANXIETY [None]
  - BACTERIAL CULTURE POSITIVE [None]
  - BIOPSY BONE ABNORMAL [None]
  - BONE DEBRIDEMENT [None]
  - BONE DISORDER [None]
  - EPISTAXIS [None]
  - GINGIVAL BLEEDING [None]
  - IMPAIRED HEALING [None]
  - INJURY [None]
  - MOUTH ULCERATION [None]
  - OSTEONECROSIS [None]
  - PAIN [None]
  - THROMBOCYTOPENIA [None]
